FAERS Safety Report 20506909 (Version 1)
Quarter: 2022Q1

REPORT INFORMATION
  Report Type: Spontaneous
  Country: US (occurrence: US)
  Receive Date: 20220223
  Receipt Date: 20220223
  Transmission Date: 20220423
  Serious: Yes (Other)
  Sender: FDA-Public Use
  Company Number: US-ELI_LILLY_AND_COMPANY-US202202005913

PATIENT
  Age: 64 Year
  Sex: Male

DRUGS (3)
  1. ERBITUX [Suspect]
     Active Substance: CETUXIMAB
     Indication: Laryngeal squamous cell carcinoma
     Dosage: 100 MG, UNKNOWN
     Route: 042
     Dates: start: 20220110
  2. FLUOROURACIL [Concomitant]
     Active Substance: FLUOROURACIL
     Indication: Laryngeal squamous cell carcinoma
  3. CARBOPLATIN [Concomitant]
     Active Substance: CARBOPLATIN
     Indication: Laryngeal squamous cell carcinoma

REACTIONS (7)
  - Blood pressure increased [Recovered/Resolved]
  - Abdominal pain [Not Recovered/Not Resolved]
  - Tongue haemorrhage [Recovering/Resolving]
  - Mouth haemorrhage [Recovering/Resolving]
  - Rash [Recovering/Resolving]
  - Mouth ulceration [Recovering/Resolving]
  - Tongue ulceration [Recovering/Resolving]

NARRATIVE: CASE EVENT DATE: 20220213
